FAERS Safety Report 6616551-5 (Version None)
Quarter: 2010Q1

REPORT INFORMATION
  Report Type: 
  Country: None (occurrence: None)
  Receive Date: 20100305
  Receipt Date: 20100223
  Transmission Date: 20100710
  Serious: Yes (Other)
  Sender: FDA-Public Use
  Company Number: DE-PFIZER INC-2010023172

PATIENT
  Age: 34 Year
  Sex: Female

DRUGS (2)
  1. ZELDOX [Suspect]
     Indication: SCHIZOPHRENIA, PARANOID TYPE
     Dosage: UNK
     Route: 048
     Dates: start: 20070101
  2. ZOPICLONE [Concomitant]
     Dosage: 7.5 MG, PER DAY AS NEEDED

REACTIONS (3)
  - AKATHISIA [None]
  - DYSKINESIA [None]
  - HALLUCINATION, AUDITORY [None]
